FAERS Safety Report 7074902-4 (Version None)
Quarter: 2010Q4

REPORT INFORMATION
  Report Type: 
  Country: None (occurrence: None)
  Receive Date: 20101029
  Receipt Date: 20101015
  Transmission Date: 20110411
  Serious: Yes (Hospitalization)
  Sender: FDA-Public Use
  Company Number: IT-GENENTECH-308447

PATIENT
  Sex: Male

DRUGS (5)
  1. XOLAIR [Suspect]
     Indication: ASTHMA
     Dosage: 225 MG, 1/MONTH
     Route: 058
     Dates: start: 20100301
  2. SYMBICORT [Concomitant]
     Dosage: UNK
     Dates: start: 20080101
  3. SPIRIVA [Concomitant]
     Dosage: UNK
     Dates: start: 20080101
  4. DELTACORTENE [Concomitant]
     Dosage: UNK
     Dates: start: 20080101
  5. SINGULAIR [Concomitant]

REACTIONS (2)
  - EOSINOPHILIA [None]
  - MYOCARDITIS [None]
